FAERS Safety Report 6211998-3 (Version None)
Quarter: 2009Q2

REPORT INFORMATION
  Report Type: 
  Country: None (occurrence: None)
  Receive Date: 20090529
  Receipt Date: 20090512
  Transmission Date: 20091009
  Serious: Yes (Hospitalization)
  Sender: FDA-Public Use
  Company Number: 1-18447102

PATIENT
  Age: 50 Year
  Sex: Female

DRUGS (7)
  1. LAMOTRIGINE [Suspect]
     Indication: BIPOLAR DISORDER
     Dosage: 25 MG, ONCE, ORAL
     Route: 048
  2. LEVOTHYROXINE [Concomitant]
  3. LITHIUM [Concomitant]
  4. DILTIAZEM [Concomitant]
  5. CLONAZEPAM [Concomitant]
  6. ZOLPIDEM TARTRATE [Concomitant]
  7. RISPERIDONE [Concomitant]

REACTIONS (11)
  - ALANINE AMINOTRANSFERASE INCREASED [None]
  - ASPARTATE AMINOTRANSFERASE INCREASED [None]
  - BLOOD ALKALINE PHOSPHATASE INCREASED [None]
  - BLOOD GLUCOSE INCREASED [None]
  - CSF GLUCOSE INCREASED [None]
  - CSF PROTEIN INCREASED [None]
  - DYSPNOEA [None]
  - GASTROENTERITIS [None]
  - MENINGITIS ASEPTIC [None]
  - TACHYCARDIA [None]
  - URINE LEUKOCYTE ESTERASE POSITIVE [None]
